FAERS Safety Report 24737075 (Version 1)
Quarter: 2024Q4

REPORT INFORMATION
  Report Type: Spontaneous
  Country: GB (occurrence: GB)
  Receive Date: 20241216
  Receipt Date: 20241216
  Transmission Date: 20250115
  Serious: Yes (Other)
  Sender: MYLAN
  Company Number: GB-MYLANLABS-2024M1101871

PATIENT
  Sex: Female

DRUGS (3)
  1. CLOZARIL [Suspect]
     Active Substance: CLOZAPINE
     Indication: Schizophrenia
     Dosage: UNK (PROPOSED DATE OF COMMENCEMENT: 11-NOV-2024)
     Route: 065
  2. CLOZARIL [Suspect]
     Active Substance: CLOZAPINE
     Dosage: UNK
     Route: 048
     Dates: start: 20241210
  3. OLANZAPINE [Concomitant]
     Active Substance: OLANZAPINE
     Dosage: UNK
     Route: 065

REACTIONS (3)
  - Seizure [Unknown]
  - Off label use [Unknown]
  - Therapy interrupted [Unknown]
